FAERS Safety Report 16821439 (Version 1)
Quarter: 2019Q3

REPORT INFORMATION
  Report Type: Report from Study
  Country: CA (occurrence: CA)
  Receive Date: 20190918
  Receipt Date: 20190918
  Transmission Date: 20191005
  Serious: Yes (Death)
  Sender: FDA-Public Use
  Company Number: CA-ROCHE-2389752

PATIENT
  Age: 35 Year
  Sex: Male

DRUGS (4)
  1. NIMBEX [Concomitant]
     Active Substance: CISATRACURIUM BESYLATE
     Route: 065
     Dates: start: 20190817, end: 20190818
  2. PERTUZUMAB. [Suspect]
     Active Substance: PERTUZUMAB
     Indication: NON-SMALL CELL LUNG CANCER
     Dosage: THE LAST DOSE OF PERTUZUMAB WAS RECEIVED ON 15/AUG/2019 (420MG)
     Route: 042
     Dates: start: 20190725, end: 20190815
  3. TRASTUZUMAB. [Suspect]
     Active Substance: TRASTUZUMAB
     Indication: NON-SMALL CELL LUNG CANCER
     Dosage: THE LAST DOSE OF TRASTUZUMAB WAS RECEIVED ON 15/AUG/2019 (386 MG)
     Route: 042
     Dates: start: 20190725, end: 20190815
  4. FENTANYL. [Concomitant]
     Active Substance: FENTANYL
     Route: 065
     Dates: start: 20190817

REACTIONS (1)
  - Pneumonitis [Fatal]

NARRATIVE: CASE EVENT DATE: 20190817
